FAERS Safety Report 9557983 (Version 2)
Quarter: 2013Q4

REPORT INFORMATION
  Report Type: Spontaneous
  Country: US (occurrence: US)
  Receive Date: 20130926
  Receipt Date: 20131022
  Transmission Date: 20140711
  Serious: Yes (Other)
  Sender: FDA-Public Use
  Company Number: US-TEVA-434419USA

PATIENT
  Age: 27 Year
  Sex: Female
  Weight: 57.66 kg

DRUGS (2)
  1. PARAGARD 380A [Suspect]
     Indication: CONTRACEPTION
     Dates: start: 20130904, end: 20130904
  2. PRENATAL VITAMINS [Concomitant]

REACTIONS (2)
  - Uterine perforation [Recovered/Resolved]
  - Procedural pain [Recovered/Resolved]
